FAERS Safety Report 5290390-2 (Version None)
Quarter: 2007Q2

REPORT INFORMATION
  Report Type: 
  Country: None (occurrence: None)
  Receive Date: 20070404
  Receipt Date: 20070404
  Transmission Date: 20071010
  Serious: No
  Sender: FDA-Public Use
  Company Number: None

PATIENT

DRUGS (2)
  1. CYMBALTA [Suspect]
     Dosage: CAPSULE, DELAYED RELEASE PELLETS  BOTTLE
  2. CYMBALTA [Suspect]
     Dosage: CAPSULE, DELAYED RELEASE PELLETS  BOTTLE

REACTIONS (7)
  - AMNESIA [None]
  - BLOOD PRESSURE INCREASED [None]
  - CONFUSIONAL STATE [None]
  - EMOTIONAL DISORDER [None]
  - MEDICATION ERROR [None]
  - SELF INJURIOUS BEHAVIOUR [None]
  - TREMOR [None]
